FAERS Safety Report 9669578 (Version 5)
Quarter: 2013Q4

REPORT INFORMATION
  Report Type: Report from Study
  Country: PL (occurrence: PL)
  Receive Date: 20131105
  Receipt Date: 20131223
  Transmission Date: 20140711
  Serious: Yes (Life-Threatening, Hospitalization, Other)
  Sender: FDA-Public Use
  Company Number: PL-PFIZER INC-2013305562

PATIENT
  Age: 67 Year
  Sex: Female
  Weight: 75.8 kg

DRUGS (9)
  1. TOFACITINIB CITRATE [Suspect]
     Indication: RHEUMATOID ARTHRITIS
     Dosage: 10 MG, 2X/DAY
     Route: 048
     Dates: start: 20120208, end: 20131210
  2. METHOTREXAT [Concomitant]
     Indication: RHEUMATOID ARTHRITIS
     Dosage: UNK
     Dates: start: 20101127
  3. METYPRED [Concomitant]
     Indication: RHEUMATOID ARTHRITIS
     Dosage: UNK
     Dates: start: 2002
  4. ACIDUM FOLICUM [Concomitant]
     Indication: RHEUMATOID ARTHRITIS
     Dosage: UNK
     Dates: start: 2008
  5. ALFADIOL [Concomitant]
     Indication: OSTEOPOROSIS
     Dosage: UNK
     Dates: start: 2008
  6. OLFEN [Concomitant]
     Indication: RHEUMATOID ARTHRITIS
     Dosage: UNK
     Dates: start: 2008
  7. ATARAX [Concomitant]
     Indication: INSOMNIA
     Dosage: UNK
     Dates: start: 201107
  8. VASILIP [Concomitant]
     Indication: HYPERLIPIDAEMIA
     Dosage: UNK
     Dates: start: 20120424
  9. VALZEK [Concomitant]
     Indication: HYPERTENSION
     Dosage: UNK
     Dates: start: 20120601

REACTIONS (1)
  - Appendicitis [Recovered/Resolved]
